FAERS Safety Report 20656006 (Version 1)
Quarter: 2022Q1

REPORT INFORMATION
  Report Type: Spontaneous
  Country: DE (occurrence: DE)
  Receive Date: 20220330
  Receipt Date: 20220330
  Transmission Date: 20220424
  Serious: Yes (Other)
  Sender: FDA-Public Use
  Company Number: DE-GILEAD-2022-0575436

PATIENT

DRUGS (1)
  1. TRODELVY [Suspect]
     Active Substance: SACITUZUMAB GOVITECAN-HZIY
     Indication: Product used for unknown indication
     Dosage: DISCONTINUED AFTER 5 CYCLES AND DAY 1 OF THE 6TH CYCLE.
     Route: 065

REACTIONS (2)
  - Disease progression [Unknown]
  - Nausea [Unknown]
